FAERS Safety Report 25497080 (Version 1)
Quarter: 2025Q3

REPORT INFORMATION
  Report Type: Spontaneous
  Country: EU (occurrence: EU)
  Receive Date: 20250701
  Receipt Date: 20250701
  Transmission Date: 20251020
  Serious: Yes (Other)
  Sender: CURRAX PHARMACEUTICALS
  Company Number: None

PATIENT
  Age: 33 Year
  Sex: Female

DRUGS (9)
  1. BUPROPION HYDROCHLORIDE\NALTREXONE HYDROCHLORIDE [Suspect]
     Active Substance: BUPROPION HYDROCHLORIDE\NALTREXONE HYDROCHLORIDE
     Indication: Obesity
     Route: 048
     Dates: start: 20250220, end: 20250327
  2. BUPROPION HYDROCHLORIDE\NALTREXONE HYDROCHLORIDE [Suspect]
     Active Substance: BUPROPION HYDROCHLORIDE\NALTREXONE HYDROCHLORIDE
     Dosage: STRENGTH 8/90 MG, INCREASE TO 2X2 DOSE
     Route: 048
     Dates: start: 20250328, end: 20250610
  3. CANDESARTAN CILEXETIL [Concomitant]
     Active Substance: CANDESARTAN CILEXETIL
     Indication: Blood pressure measurement
     Dosage: 8 MG, QD
     Route: 048
     Dates: start: 202112
  4. CANDESARTAN CILEXETIL [Concomitant]
     Active Substance: CANDESARTAN CILEXETIL
     Dosage: 1 TABLET DAILY (10.2. INCREASED TO THIS DOSE 12/2021 8 MG 1X1)
     Route: 048
     Dates: start: 20220321
  5. Cypretyl [Concomitant]
     Indication: Contraception
     Route: 048
     Dates: start: 20140905
  6. Cypretyl [Concomitant]
     Indication: Acne
  7. DESLORATADINE [Concomitant]
     Active Substance: DESLORATADINE
     Indication: Rhinitis
     Route: 048
     Dates: start: 2014
  8. DESLORATADINE [Concomitant]
     Active Substance: DESLORATADINE
     Indication: Nasal congestion
  9. BUDESONIDE\FORMOTEROL FUMARATE [Concomitant]
     Active Substance: BUDESONIDE\FORMOTEROL FUMARATE
     Indication: Asthma
     Dates: start: 202108

REACTIONS (3)
  - Urinary retention [Unknown]
  - Taste disorder [Unknown]
  - Dysuria [Unknown]

NARRATIVE: CASE EVENT DATE: 20250301
